FAERS Safety Report 10507408 (Version 3)
Quarter: 2014Q4

REPORT INFORMATION
  Report Type: Spontaneous
  Country: NL (occurrence: NL)
  Receive Date: 20141009
  Receipt Date: 20141204
  Transmission Date: 20150528
  Serious: Yes (Hospitalization, Other)
  Sender: FDA-Public Use
  Company Number: NL-AMGEN-NLDSP2014077210

PATIENT
  Age: 78 Year
  Sex: Female

DRUGS (20)
  1. MOVICOLON [Concomitant]
     Active Substance: POLYETHYLENE GLYCOL 3350\POTASSIUM CHLORIDE\SODIUM BICARBONATE\SODIUM CHLORIDE
     Dosage: 1 DF, QD
     Route: 048
  2. SPIRONOLACTON [Concomitant]
     Active Substance: SPIRONOLACTONE
     Dosage: 25 MG, 1DF, QD
     Route: 048
  3. IPRATROPIUM W/SALBUTAMOL [Concomitant]
     Dosage: SPRAY FLUID 1/0,2MG/ML FL, 1DF 4 TIMES DAILY AS NEEDED
  4. PANTOPRAZOLE [Concomitant]
     Active Substance: PANTOPRAZOLE SODIUM
     Dosage: 40 MG, QD
     Route: 048
  5. LACTULOSE. [Concomitant]
     Active Substance: LACTULOSE
     Dosage: 670MG/ML (500MG/G), 30 MILLILITER, QD
  6. TIOTROPIUM [Concomitant]
     Active Substance: TIOTROPIUM
     Dosage: 18 MUG, QD
  7. MICONAZOL [Concomitant]
     Dosage: 20 MG/G, BID
     Route: 061
  8. DOXAZOSINE [Concomitant]
     Active Substance: DOXAZOSIN MESYLATE
     Dosage: 4 MG, QD
     Route: 048
  9. CICLESONIDE [Concomitant]
     Active Substance: CICLESONIDE
     Dosage: 160UG/DO, 60DO INH, 1 DF, QD
  10. SALBUTAMOL [Concomitant]
     Active Substance: ALBUTEROL
     Dosage: 100UG/DO, 200 DO, 1DF, QD
  11. AMLODIPINE BESILATE [Concomitant]
     Active Substance: AMLODIPINE BESYLATE
     Dosage: 10 MG, QD
     Route: 048
  12. SALMETEROL [Concomitant]
     Active Substance: SALMETEROL
     Dosage: 25UG/DO,120 DO, 2 DF BID
  13. IRBESARTAN. [Concomitant]
     Active Substance: IRBESARTAN
     Dosage: 300 MG, QD
     Route: 048
  14. PARACETAMOL [Concomitant]
     Active Substance: ACETAMINOPHEN
     Dosage: 500 MG, QID
     Route: 048
  15. OXAZEPAM. [Concomitant]
     Active Substance: OXAZEPAM
     Dosage: 10 MG, AS NECESSARY
     Route: 048
  16. METOPROLOL [Concomitant]
     Active Substance: METOPROLOL
     Dosage: 100 MG, QD
     Route: 048
  17. PROLIA [Suspect]
     Active Substance: DENOSUMAB
     Indication: PRODUCT USED FOR UNKNOWN INDICATION
     Dosage: UNK
     Route: 065
     Dates: start: 2012, end: 201402
  18. FUROSEMIDE. [Concomitant]
     Active Substance: FUROSEMIDE
     Dosage: 40 MG, QD
     Route: 048
  19. VITAMINE D3 B.O.N. [Concomitant]
     Dosage: 50000 IU, QMO
  20. COLLODION W/DL- LACTIC ACID/SALICYLIC ACID [Concomitant]
     Dosage: 200 MG/G, QD

REACTIONS (12)
  - Urinary tract infection [Unknown]
  - Wound [Unknown]
  - Arteriosclerosis [Unknown]
  - Bacteraemia [Unknown]
  - Pain [Unknown]
  - Device related infection [Unknown]
  - Pyrexia [Unknown]
  - Psoas abscess [Unknown]
  - Aortic aneurysm [Unknown]
  - Intervertebral discitis [Unknown]
  - Arthralgia [Unknown]
  - C-reactive protein increased [Unknown]

NARRATIVE: CASE EVENT DATE: 2014
